FAERS Safety Report 6283383-X (Version None)
Quarter: 2009Q3

REPORT INFORMATION
  Report Type: 
  Country: None (occurrence: None)
  Receive Date: 20090724
  Receipt Date: 20090528
  Transmission Date: 20100115
  Serious: No
  Sender: FDA-Public Use
  Company Number: IT-ALEXION-A200900145

PATIENT

DRUGS (4)
  1. SOLIRIS [Suspect]
     Indication: PAROXYSMAL NOCTURNAL HAEMOGLOBINURIA
     Dosage: 600 MG, QW
     Route: 042
     Dates: start: 20050728, end: 20050908
  2. SOLIRIS [Suspect]
     Dosage: 900 MG, Q14D
     Route: 042
     Dates: start: 20050915
  3. SOLIRIS [Suspect]
     Dosage: 900 MG, Q12D
     Route: 042
     Dates: start: 20070913
  4. SOLIRIS [Suspect]
     Dosage: 1200 MG, Q12D
     Route: 042
     Dates: start: 20090116

REACTIONS (1)
  - DRUG INEFFECTIVE [None]
